FAERS Safety Report 7714208 (Version 5)
Quarter: 2013Q3

REPORT INFORMATION
  Report Type: Spontaneous
  Country: US (occurrence: US)
  Receive Date: 20101216
  Receipt Date: 20130821
  Transmission Date: 20140515
  Serious: Yes (Other)
  Sender: FDA-Public Use
  Company Number: US-JNJFOC-20100509024

PATIENT
  Age: 57 Year
  Sex: Female
  Weight: 104.33 kg

DRUGS (1)
  1. LEVAQUIN [Suspect]
     Indication: SINUSITIS
     Route: 048

REACTIONS (5)
  - Rotator cuff syndrome [Recovering/Resolving]
  - Tendon rupture [Unknown]
  - Rotator cuff syndrome [Recovering/Resolving]
  - Tendonitis [Unknown]
  - Joint injury [Recovering/Resolving]
